FAERS Safety Report 8791810 (Version 2)
Quarter: 2012Q4

REPORT INFORMATION
  Report Type: 
  Country: US (occurrence: US)
  Receive Date: 20120918
  Receipt Date: 20120920
  Transmission Date: 20130627
  Serious: Yes (Hospitalization, Disabling, Other)
  Sender: FDA-Public Use
  Company Number: US-009507513-1103USA02688

PATIENT

DRUGS (8)
  1. FOSAMAX [Suspect]
     Indication: OSTEOPOROSIS
     Dosage: 70 mg, UNK
     Route: 048
     Dates: start: 2002, end: 200512
  2. FOSAMAX [Suspect]
     Dosage: 70 mg, QW
     Route: 048
     Dates: start: 200607, end: 200712
  3. ACTONEL [Suspect]
     Indication: OSTEOPOROSIS
     Dosage: 150 mg, UNK
     Route: 048
     Dates: start: 200908, end: 200911
  4. ARTHROTEC [Concomitant]
     Indication: OSTEOARTHRITIS
     Dosage: 75/200
     Route: 048
     Dates: start: 2000
  5. FOSAMAX [Suspect]
     Indication: OSTEOPOROSIS
     Dosage: 70 mg, UNK
     Route: 048
     Dates: start: 20060410, end: 200606
  6. FOSAMAX [Suspect]
     Indication: OSTEOPOROSIS
     Dosage: 70 mg, UNK
     Route: 048
     Dates: start: 20080326, end: 200907
  7. SYNTHROID [Concomitant]
     Indication: HYPOTHYROIDISM
     Dates: start: 1965
  8. EVISTA [Suspect]
     Dosage: 60 mg, qd
     Route: 048

REACTIONS (64)
  - Parkinson^s disease [Unknown]
  - Osteoarthritis [Unknown]
  - Eyelid ptosis [Unknown]
  - Deafness unilateral [Unknown]
  - Paresis [Unknown]
  - Osteomyelitis chronic [Not Recovered/Not Resolved]
  - Hand fracture [Unknown]
  - Foot fracture [Unknown]
  - Osteonecrosis [Unknown]
  - Osteonecrosis of jaw [Unknown]
  - Dental caries [Unknown]
  - Tooth disorder [Unknown]
  - Bone loss [Unknown]
  - Oral herpes [Unknown]
  - Sinus disorder [Unknown]
  - Periodontitis [Unknown]
  - Tooth fracture [Unknown]
  - Tooth fracture [Unknown]
  - Impaired healing [Unknown]
  - Fracture nonunion [Unknown]
  - Tooth abscess [Unknown]
  - Rotator cuff syndrome [Unknown]
  - Parkinson^s disease [Unknown]
  - Intervertebral disc degeneration [Unknown]
  - Spondylolisthesis [Unknown]
  - Foot deformity [Unknown]
  - Foot deformity [Unknown]
  - Panic attack [Unknown]
  - Anxiety disorder [Unknown]
  - Injury [Unknown]
  - Carpal tunnel syndrome [Not Recovered/Not Resolved]
  - Post procedural complication [Unknown]
  - Hypotension [Unknown]
  - Hypoaesthesia [Unknown]
  - Contusion [Unknown]
  - VIIth nerve paralysis [Unknown]
  - Neuropathy peripheral [Unknown]
  - Gingival oedema [Unknown]
  - Jaw disorder [Unknown]
  - Hypoaesthesia [Unknown]
  - Arthritis [Unknown]
  - Periarthritis [Unknown]
  - Vision blurred [Unknown]
  - Tinnitus [Unknown]
  - Mouth breathing [Unknown]
  - Oral pain [Unknown]
  - Trismus [Unknown]
  - Increased tendency to bruise [Unknown]
  - Parosmia [Unknown]
  - Dysaesthesia [Unknown]
  - Joint instability [Unknown]
  - Actinic keratosis [Unknown]
  - Bronchitis [Unknown]
  - Skin exfoliation [Unknown]
  - Tympanosclerosis [Unknown]
  - Arthropathy [Unknown]
  - Cataract [Unknown]
  - Hyperglycaemia [Unknown]
  - Urinary incontinence [Unknown]
  - Pollakiuria [Unknown]
  - Arrhythmia [Unknown]
  - Depression [Unknown]
  - Vaginal infection [Unknown]
  - Dysgeusia [Unknown]
